FAERS Safety Report 17711657 (Version 2)
Quarter: 2020Q2

REPORT INFORMATION
  Report Type: Report from Study
  Country: DE (occurrence: DE)
  Receive Date: 20200427
  Receipt Date: 20200429
  Transmission Date: 20200714
  Serious: Yes (Hospitalization)
  Sender: FDA-Public Use
  Company Number: DE-SA-2020SA060060

PATIENT
  Age: 58 Year
  Sex: Female
  Weight: 57 kg

DRUGS (13)
  1. LENALIDOMIDE [Suspect]
     Active Substance: LENALIDOMIDE
     Dosage: 25 MG, QD
     Route: 048
     Dates: start: 20190104, end: 20190104
  2. ACICLOVIR [Concomitant]
     Active Substance: ACYCLOVIR
     Indication: PROPHYLAXIS
     Dosage: 400 MG, BID
     Route: 048
     Dates: start: 20190104, end: 20200304
  3. NALOXONE;OXYCODONE [Concomitant]
     Active Substance: NALOXONE HYDROCHLORIDE\OXYCODONE HYDROCHLORIDE
     Indication: PAIN
     Dosage: 30/15 MG, BID
     Route: 048
     Dates: start: 20190104, end: 20200304
  4. ISATUXIMAB [Suspect]
     Active Substance: ISATUXIMAB
     Indication: PLASMA CELL MYELOMA
     Dosage: 10 MG/KG, QOW
     Route: 042
     Dates: start: 20200226, end: 20200226
  5. DEXAMETHASONE. [Suspect]
     Active Substance: DEXAMETHASONE
     Dosage: 40 MG, QD
     Route: 048
     Dates: start: 20190104, end: 20190104
  6. PREGABALIN. [Concomitant]
     Active Substance: PREGABALIN
     Indication: POLYNEUROPATHY
     Dosage: 125 MG, BID
     Route: 048
     Dates: start: 20190104, end: 20200304
  7. CARFILZOMIB [Suspect]
     Active Substance: CARFILZOMIB
     Indication: PLASMA CELL MYELOMA
     Dosage: 36 MG/M2, BIW
     Route: 042
     Dates: start: 20200227, end: 20200227
  8. ASPIRIN. [Concomitant]
     Active Substance: ASPIRIN
     Indication: THROMBOSIS PROPHYLAXIS
     Dosage: 100 MG, QD
     Route: 048
     Dates: start: 20190104, end: 20200304
  9. PENTACARINAT [Concomitant]
     Active Substance: PENTAMIDINE ISETHIONATE
     Indication: PROPHYLAXIS
     Dosage: 300 MG, Q4W
     Route: 055
     Dates: start: 20190204, end: 20200219
  10. ISATUXIMAB [Suspect]
     Active Substance: ISATUXIMAB
     Dosage: 10 MG/KG, QW
     Route: 042
     Dates: start: 20190104, end: 20190104
  11. CARFILZOMIB [Suspect]
     Active Substance: CARFILZOMIB
     Dosage: 36 MG/M2, BIW
     Route: 042
     Dates: start: 20190104, end: 20190104
  12. LENALIDOMIDE [Suspect]
     Active Substance: LENALIDOMIDE
     Indication: PLASMA CELL MYELOMA
     Dosage: 25 MG, QD
     Route: 048
     Dates: start: 20200303, end: 20200303
  13. DEXAMETHASONE. [Suspect]
     Active Substance: DEXAMETHASONE
     Indication: PLASMA CELL MYELOMA
     Dosage: 40 MG, QD
     Route: 048
     Dates: start: 20190304, end: 20190304

REACTIONS (1)
  - Pneumonia respiratory syncytial viral [Recovered/Resolved]

NARRATIVE: CASE EVENT DATE: 20200304
